FAERS Safety Report 7436693-4 (Version None)
Quarter: 2011Q2

REPORT INFORMATION
  Report Type: 
  Country: None (occurrence: None)
  Receive Date: 20110426
  Receipt Date: 20110412
  Transmission Date: 20111010
  Serious: Yes (Death, Other)
  Sender: FDA-Public Use
  Company Number: US-CELGENEUS-163-21660-11041497

PATIENT
  Age: 79 Year
  Sex: Male

DRUGS (2)
  1. ABRAXANE [Suspect]
     Dosage: 100 MILLIGRAM/SQ. METER
     Route: 051
  2. CARBOPLATIN [Suspect]
     Dosage: TARGET AUC OF 2
     Route: 065

REACTIONS (5)
  - ENTEROCOLITIS INFECTIOUS [None]
  - DIARRHOEA [None]
  - FEBRILE NEUTROPENIA [None]
  - HYPOTENSION [None]
  - DEATH [None]
